FAERS Safety Report 5331988-2 (Version None)
Quarter: 2007Q2

REPORT INFORMATION
  Report Type: 
  Country: None (occurrence: None)
  Receive Date: 20070518
  Receipt Date: 20070504
  Transmission Date: 20071010
  Serious: Yes (Death, Hospitalization)
  Sender: FDA-Public Use
  Company Number: ALK_00219_2007

PATIENT
  Age: 36 Year
  Sex: Male

DRUGS (3)
  1. VIVITROL [Suspect]
     Indication: ALCOHOLISM
     Dosage: 380 MG 1X/ MONTH   INTRAMUSCULAR
     Route: 030
  2. ANTABUSE [Concomitant]
  3. CAMPRAL [Concomitant]

REACTIONS (2)
  - PANCREATITIS [None]
  - RENAL FAILURE [None]
